FAERS Safety Report 25281731 (Version 2)
Quarter: 2025Q3

REPORT INFORMATION
  Report Type: Spontaneous
  Country: EU (occurrence: EU)
  Receive Date: 20250508
  Receipt Date: 20250716
  Transmission Date: 20251021
  Serious: Yes (Life-Threatening, Other)
  Sender: ROCHE
  Company Number: EU-ROCHE-10000274802

PATIENT
  Age: 39 Year
  Sex: Male

DRUGS (6)
  1. EMICIZUMAB [Suspect]
     Active Substance: EMICIZUMAB
     Indication: Acquired haemophilia
     Route: 065
  2. RITUXIMAB [Suspect]
     Active Substance: RITUXIMAB
     Indication: Immunosuppressant drug therapy
     Route: 065
  3. MYCOPHENOLATE MOFETIL [Suspect]
     Active Substance: MYCOPHENOLATE MOFETIL
     Indication: Immunosuppressant drug therapy
     Route: 065
  4. CYCLOSPORINE [Suspect]
     Active Substance: CYCLOSPORINE
     Indication: Immunosuppressant drug therapy
     Route: 065
  5. DEXAMETHASONE [Suspect]
     Active Substance: DEXAMETHASONE
     Indication: Immunosuppressant drug therapy
     Route: 065
  6. TOLODODEKIN ALFA [Suspect]
     Active Substance: TOLODODEKIN ALFA
     Indication: Immunosuppressant drug therapy
     Route: 065

REACTIONS (4)
  - Subarachnoid haemorrhage [Unknown]
  - Subdural haemorrhage [Unknown]
  - Haematoma [Unknown]
  - Shock haemorrhagic [Unknown]
